FAERS Safety Report 13273971 (Version 1)
Quarter: 2017Q1

REPORT INFORMATION
  Report Type: Report from Study
  Country: CA (occurrence: CA)
  Receive Date: 20170227
  Receipt Date: 20170227
  Transmission Date: 20170428
  Serious: Yes (Other)
  Sender: FDA-Public Use
  Company Number: PHHY2017CA022153

PATIENT
  Sex: Female

DRUGS (3)
  1. GLIVEC [Suspect]
     Active Substance: IMATINIB MESYLATE
     Indication: CHRONIC MYELOID LEUKAEMIA
     Dosage: 400 MG, QD
     Route: 048
     Dates: start: 2009, end: 20161130
  2. GLIVEC [Suspect]
     Active Substance: IMATINIB MESYLATE
     Dosage: 400 MG, QD
     Route: 048
     Dates: start: 20170207
  3. IMATINIB [Suspect]
     Active Substance: IMATINIB
     Indication: CHRONIC MYELOID LEUKAEMIA
     Route: 065

REACTIONS (12)
  - Muscle spasms [Unknown]
  - Pain in extremity [Unknown]
  - Chronic myeloid leukaemia recurrent [Unknown]
  - Panic reaction [Unknown]
  - Vomiting [Unknown]
  - Feeling abnormal [Unknown]
  - Tourette^s disorder [Unknown]
  - Abdominal pain upper [Unknown]
  - Memory impairment [Unknown]
  - Nausea [Unknown]
  - Menstruation irregular [Unknown]
  - Drug ineffective [Unknown]
